FAERS Safety Report 18433038 (Version 2)
Quarter: 2020Q4

REPORT INFORMATION
  Report Type: Spontaneous
  Country: BE (occurrence: BE)
  Receive Date: 20201027
  Receipt Date: 20201112
  Transmission Date: 20210114
  Serious: Yes (Hospitalization)
  Sender: FDA-Public Use
  Company Number: BE-ABBVIE-20K-013-3624261-00

PATIENT
  Age: 42 Year
  Sex: Male
  Weight: 75.5 kg

DRUGS (8)
  1. CLEXANE [Concomitant]
     Active Substance: ENOXAPARIN SODIUM
     Indication: THROMBOSIS PROPHYLAXIS
     Dosage: 40 MG/0.4 ML
     Route: 065
     Dates: start: 20201008, end: 20201008
  2. DAFALGAN [Concomitant]
     Active Substance: ACETAMINOPHEN
     Indication: PAIN
     Route: 065
     Dates: start: 20201008
  3. ENTYVIO [Concomitant]
     Active Substance: VEDOLIZUMAB
     Indication: PRODUCT USED FOR UNKNOWN INDICATION
     Route: 065
     Dates: start: 201701
  4. MEDROL [Concomitant]
     Active Substance: METHYLPREDNISOLONE
     Indication: CROHN^S DISEASE
     Route: 065
  5. PANTOMED [Concomitant]
     Indication: GASTROOESOPHAGEAL REFLUX DISEASE
     Route: 065
     Dates: start: 20201008, end: 20201008
  6. HARTMANN [Concomitant]
     Active Substance: CALCIUM CHLORIDE\POTASSIUM CHLORIDE\SODIUM CHLORIDE\SODIUM LACTATE
     Indication: DEHYDRATION
     Dosage: 60 MILLILITRE PER HOUR
     Route: 065
     Dates: start: 20201007, end: 20201007
  7. HUMIRA [Suspect]
     Active Substance: ADALIMUMAB
     Indication: CROHN^S DISEASE
     Route: 058
     Dates: start: 20171009
  8. IMRALDI [Suspect]
     Active Substance: ADALIMUMAB
     Indication: PRODUCT USED FOR UNKNOWN INDICATION
     Dosage: 40 MG/0.8 ML
     Route: 058
     Dates: start: 20191230, end: 20200113

REACTIONS (9)
  - Anal fistula [Recovered/Resolved]
  - Blood creatinine decreased [Unknown]
  - C-reactive protein increased [Unknown]
  - Inflammation [Recovered/Resolved]
  - Haematocrit decreased [Unknown]
  - Inflammatory marker increased [Recovered/Resolved]
  - White blood cell count increased [Unknown]
  - Anal inflammation [Recovered/Resolved]
  - Anal abscess [Recovered/Resolved]

NARRATIVE: CASE EVENT DATE: 20201006
